FAERS Safety Report 20729466 (Version 1)
Quarter: 2022Q2

REPORT INFORMATION
  Report Type: Other
  Country: FR (occurrence: FR)
  Receive Date: 20220420
  Receipt Date: 20220420
  Transmission Date: 20220720
  Serious: Yes (Hospitalization, Other)
  Sender: FDA-Public Use
  Company Number: FR-ASTELLAS-2022US014160

PATIENT
  Age: 48 Year
  Sex: Male

DRUGS (9)
  1. CRESEMBA [Suspect]
     Active Substance: ISAVUCONAZONIUM SULFATE
     Indication: Aspergillus infection
     Route: 048
     Dates: start: 20220307
  2. ICLUSIG [Suspect]
     Active Substance: PONATINIB
     Indication: Philadelphia positive acute lymphocytic leukaemia
     Route: 048
     Dates: start: 20190208, end: 20220310
  3. AMPHOTERICIN B [Concomitant]
     Active Substance: AMPHOTERICIN B
     Indication: Aspergillus infection
     Dosage: 3 MG/KG (DRIP), ONCE DAILY
     Route: 041
     Dates: start: 20220127, end: 20220307
  4. VALACYCLOVIR HYDROCHLORIDE [Concomitant]
     Active Substance: VALACYCLOVIR HYDROCHLORIDE
     Indication: Antiviral prophylaxis
     Route: 048
     Dates: start: 20220310
  5. BLINCYTO [Concomitant]
     Active Substance: BLINATUMOMAB
     Indication: Philadelphia positive acute lymphocytic leukaemia
     Route: 041
     Dates: start: 20220127, end: 20220225
  6. OFLOXACIN [Concomitant]
     Active Substance: OFLOXACIN
     Indication: Klebsiella infection
     Dosage: UNK UNK, UNKNOWN FREQ.
     Route: 048
     Dates: start: 20220304, end: 20220312
  7. TECARTUS [Concomitant]
     Active Substance: BREXUCABTAGENE AUTOLEUCEL
     Indication: Philadelphia positive acute lymphocytic leukaemia
     Dosage: UNK UNK 68 ML ((CAR), UNKNOWN FREQ.(CAR T-CELLS NOS)(CAR T-CELLS NOS))
     Route: 041
     Dates: start: 20211216, end: 20211216
  8. TECARTUS [Concomitant]
     Active Substance: BREXUCABTAGENE AUTOLEUCEL
     Dosage: UNK UNK 68 ML ((CAR), UNKNOWN FREQ.(CAR T-CELLS NOS)(CAR T-CELLS NOS))
     Route: 041
     Dates: start: 20210902, end: 20210902
  9. PAROXETINE HYDROCHLORIDE [Concomitant]
     Active Substance: PAROXETINE HYDROCHLORIDE
     Indication: Depression
     Route: 048
     Dates: start: 20190801

REACTIONS (1)
  - Ischaemic stroke [Recovering/Resolving]

NARRATIVE: CASE EVENT DATE: 20220310
